FAERS Safety Report 17473542 (Version 1)
Quarter: 2020Q1

REPORT INFORMATION
  Report Type: Not Available
  Country: CA (occurrence: CA)
  Receive Date: 20200228
  Receipt Date: 20200228
  Transmission Date: 20200409
  Serious: Yes (Life-Threatening, Hospitalization, Other)
  Sender: FDA-Public Use
  Company Number: CA-CELGENEUS-CAN-20200208798

PATIENT
  Age: 78 Year
  Sex: Female

DRUGS (4)
  1. VELCADE [Concomitant]
     Active Substance: BORTEZOMIB
     Indication: PRODUCT USED FOR UNKNOWN INDICATION
     Route: 041
  2. CEFAZOLIN [Suspect]
     Active Substance: CEFAZOLIN
     Indication: FEBRILE NEUTROPENIA
     Route: 041
  3. TOBRAMYCIN. [Suspect]
     Active Substance: TOBRAMYCIN
     Indication: FEBRILE NEUTROPENIA
     Route: 041
  4. REVLIMID [Suspect]
     Active Substance: LENALIDOMIDE
     Indication: PLASMA CELL MYELOMA
     Route: 048

REACTIONS (4)
  - Febrile neutropenia [Recovered/Resolved]
  - Rash maculo-papular [Recovered/Resolved]
  - Neuropathy peripheral [Recovered/Resolved]
  - Angioedema [Recovered/Resolved]
